FAERS Safety Report 13192065 (Version 5)
Quarter: 2017Q1

REPORT INFORMATION
  Report Type: Spontaneous
  Country: US (occurrence: US)
  Receive Date: 20170207
  Receipt Date: 20170324
  Transmission Date: 20170428
  Serious: No
  Sender: FDA-Public Use
  Company Number: US-PFIZER INC-2017051800

PATIENT
  Age: 73 Year
  Sex: Male
  Weight: 109 kg

DRUGS (3)
  1. CHANTIX [Suspect]
     Active Substance: VARENICLINE TARTRATE
     Dosage: 1 MG, 2X/DAY (1 AM, 1 PM)
     Route: 048
     Dates: start: 20170112
  2. JANUMET [Concomitant]
     Active Substance: METFORMIN HYDROCHLORIDE\SITAGLIPTIN PHOSPHATE
     Indication: TYPE 2 DIABETES MELLITUS
     Dosage: UNK
  3. CHANTIX [Suspect]
     Active Substance: VARENICLINE TARTRATE
     Indication: SMOKING CESSATION THERAPY
     Dosage: 0.5 MG, UNK

REACTIONS (3)
  - Drug ineffective [Unknown]
  - Nightmare [Not Recovered/Not Resolved]
  - Abnormal dreams [Unknown]

NARRATIVE: CASE EVENT DATE: 201701
